FAERS Safety Report 15377363 (Version 2)
Quarter: 2018Q3

REPORT INFORMATION
  Report Type: Spontaneous
  Country: US (occurrence: US)
  Receive Date: 20180913
  Receipt Date: 20180917
  Transmission Date: 20181010
  Serious: No
  Sender: FDA-Public Use
  Company Number: US-PFIZER INC-2018367852

PATIENT
  Age: 76 Year
  Sex: Female
  Weight: 53.52 kg

DRUGS (1)
  1. VERAPAMIL HCL [Suspect]
     Active Substance: VERAPAMIL HYDROCHLORIDE
     Indication: PALPITATIONS
     Dosage: UNK

REACTIONS (1)
  - Malaise [Recovered/Resolved]
